FAERS Safety Report 4746540-7 (Version None)
Quarter: 2005Q3

REPORT INFORMATION
  Report Type: 
  Country: None (occurrence: None)
  Receive Date: 20050815
  Receipt Date: 20050728
  Transmission Date: 20060218
  Serious: Yes (Death, Hospitalization, Other)
  Sender: FDA-Public Use
  Company Number: USA050597502

PATIENT
  Age: 81 Year
  Sex: Female

DRUGS (12)
  1. FORTEO [Suspect]
     Indication: OSTEOPOROSIS
     Dosage: 20 UG DAY
     Dates: start: 20041001, end: 20050501
  2. LASIX [Concomitant]
  3. POTASSIUM CHLORIDE [Concomitant]
  4. SPIRONOLACTONE [Concomitant]
  5. TOPROL (METOPROLOL SUCCINATE) [Concomitant]
  6. PRILOSEC [Concomitant]
  7. LIPITOR [Concomitant]
  8. LORAZEPAM [Concomitant]
  9. ASPIRIN TAB [Concomitant]
  10. CAPTOPRIL [Concomitant]
  11. LANTUS [Concomitant]
  12. MIRAPEX [Concomitant]

REACTIONS (10)
  - BLOOD CREATININE INCREASED [None]
  - BLOOD PRESSURE INADEQUATELY CONTROLLED [None]
  - BUNDLE BRANCH BLOCK RIGHT [None]
  - CARDIAC FAILURE CONGESTIVE [None]
  - CREPITATIONS [None]
  - DIALYSIS [None]
  - HYPERKALAEMIA [None]
  - HYPONATRAEMIA [None]
  - MALAISE [None]
  - THERAPY NON-RESPONDER [None]
